FAERS Safety Report 20311528 (Version 3)
Quarter: 2022Q1

REPORT INFORMATION
  Report Type: Spontaneous
  Country: US (occurrence: US)
  Receive Date: 20220108
  Receipt Date: 20220317
  Transmission Date: 20220423
  Serious: Yes (Other)
  Sender: FDA-Public Use
  Company Number: US-CELLTRION INC.-2021US015924

PATIENT

DRUGS (1)
  1. INFLECTRA [Suspect]
     Active Substance: INFLIXIMAB-DYYB
     Indication: Rheumatoid arthritis
     Dosage: 900MG, EVERY EIGHT WEEKS
     Route: 065
     Dates: end: 20211116

REACTIONS (3)
  - Rheumatoid arthritis [Unknown]
  - Loss of therapeutic response [Unknown]
  - Overdose [Unknown]
